FAERS Safety Report 10273727 (Version 2)
Quarter: 2014Q3

REPORT INFORMATION
  Report Type: Spontaneous
  Country: JP (occurrence: None)
  Receive Date: 20140630
  Receipt Date: 20140930
  Transmission Date: 20150326
  Serious: Yes (Hospitalization)
  Sender: FDA-Public Use
  Company Number: JP-016165

PATIENT
  Age: 74 Year
  Sex: Male
  Weight: 49 kg

DRUGS (8)
  1. HIRUDOID [Concomitant]
     Active Substance: GLYCOSAMINOGLYCANS
  2. XTANDI [Suspect]
     Active Substance: ENZALUTAMIDE
     Indication: PROSTATE CANCER
     Route: 048
     Dates: start: 20140530
  3. EBASTINE [Concomitant]
     Active Substance: EBASTINE
  4. PREDONINE [Concomitant]
     Active Substance: PREDNISOLONE\PREDNISOLONE ACETATE\PREDNISOLONE SODIUM SUCCINATE
  5. ANTEBATE [Concomitant]
     Active Substance: BETAMETHASONE DIPROPIONATE
  6. MYSER [Concomitant]
     Active Substance: DIFLUPREDNATE
  7. WATER FOR INJECTION [Concomitant]
     Active Substance: WATER
  8. DEGARELIX (GONAX) 240 MG [Suspect]
     Active Substance: DEGARELIX
     Indication: PROSTATE CANCER
     Route: 058
     Dates: start: 20140530, end: 20140530

REACTIONS (7)
  - Decreased appetite [None]
  - Malaise [None]
  - Pyrexia [None]
  - White blood cell count increased [None]
  - Infection [None]
  - C-reactive protein increased [None]
  - Injection site pain [None]

NARRATIVE: CASE EVENT DATE: 20140530
